FAERS Safety Report 8220418-9 (Version None)
Quarter: 2012Q1

REPORT INFORMATION
  Report Type: 
  Country: None (occurrence: None)
  Receive Date: 20120307
  Receipt Date: 20101111
  Transmission Date: 20120608
  Serious: Yes (Hospitalization)
  Sender: FDA-Public Use
  Company Number: PHHY2010US77324

PATIENT
  Sex: Male

DRUGS (14)
  1. ENALAPRIL MALEATE [Concomitant]
  2. TRIAMCINOLONE [Concomitant]
  3. LOPID [Concomitant]
  4. METOPROLOL TARTRATE [Concomitant]
  5. NORCO [Concomitant]
  6. ZOFRAN [Concomitant]
  7. BENZOYL PEROXIDE (BENZOYL PEROXIDE) [Concomitant]
  8. NEXIUM [Concomitant]
  9. AFINITOR [Suspect]
     Indication: RENAL CELL CARCINOMA
     Dosage: 10 MG DAILY, ORAL
     Route: 048
     Dates: start: 20101014
  10. NEURONTIN [Concomitant]
  11. HYDROCHLOROTHIAZIDE [Concomitant]
  12. LANTUS [Concomitant]
  13. METFORMIN HCL [Concomitant]
  14. CLINDAMYCIN [Concomitant]

REACTIONS (6)
  - PNEUMONIA [None]
  - NAUSEA [None]
  - ABDOMINAL PAIN [None]
  - COUGH [None]
  - PYREXIA [None]
  - CHILLS [None]
